FAERS Safety Report 10101682 (Version 4)
Quarter: 2014Q4

REPORT INFORMATION
  Report Type: Spontaneous
  Country: JP (occurrence: None)
  Receive Date: 20140422
  Receipt Date: 20141030
  Transmission Date: 20150528
  Serious: Yes (Hospitalization, Congenital Anomaly, Other)
  Sender: FDA-Public Use
  Company Number: 2014041725

PATIENT
  Sex: Female
  Weight: .4 kg

DRUGS (9)
  1. DESMOPRESSIN NASAL DROPS [Suspect]
     Active Substance: DESMOPRESSIN
     Indication: DIABETES INSIPIDUS
     Route: 064
     Dates: start: 20110408
  2. UTERON (RITODRINE HYDROCHLORIDE) [Concomitant]
  3. HUMANLOG INSULIN (INSULIN LISPRO) [Concomitant]
  4. FLOMOX (CEFCAPENE PIVOXIL HYDROCHLORIDE) [Concomitant]
  5. BIOFERMIN (BIOFERMIN) [Concomitant]
  6. ALDOMET (METHYLDOPATE HYDROCHLORIDE) [Concomitant]
  7. FLAGYL (METRONIDAZOLE) [Concomitant]
  8. APRESOLINE (HYDRALAZINE HYDROCHLORIDE) [Concomitant]
  9. ADALAT L (NIFEDIPINE) [Concomitant]

REACTIONS (7)
  - Maternal drugs affecting foetus [None]
  - Premature baby [None]
  - Caesarean section [None]
  - Low birth weight baby [None]
  - Bronchopulmonary dysplasia [None]
  - Retinopathy of prematurity [None]
  - Foetal growth restriction [None]
